FAERS Safety Report 14573799 (Version 8)
Quarter: 2019Q3

REPORT INFORMATION
  Report Type: Report from Study
  Country: CA (occurrence: CA)
  Receive Date: 20180226
  Receipt Date: 20190923
  Transmission Date: 20191004
  Serious: Yes (Hospitalization, Other)
  Sender: FDA-Public Use
  Company Number: CA-BRISTOL-MYERS SQUIBB COMPANY-BMS-2016-053989

PATIENT
  Age: 67 Year
  Sex: Female

DRUGS (13)
  1. LEUCOVORIN                         /00566701/ [Concomitant]
     Active Substance: LEUCOVORIN
     Indication: PRODUCT USED FOR UNKNOWN INDICATION
     Route: 065
  2. METOPROLOL. [Concomitant]
     Active Substance: METOPROLOL
     Indication: PRODUCT USED FOR UNKNOWN INDICATION
     Route: 065
  3. ABATACEPT [Suspect]
     Active Substance: ABATACEPT
     Indication: PRODUCT USED FOR UNKNOWN INDICATION
     Dosage: 750 MG, UNK
     Route: 065
     Dates: start: 201610
  4. DEXILANT [Concomitant]
     Active Substance: DEXLANSOPRAZOLE
     Indication: PRODUCT USED FOR UNKNOWN INDICATION
     Route: 065
  5. XARELTO [Concomitant]
     Active Substance: RIVAROXABAN
     Indication: PRODUCT USED FOR UNKNOWN INDICATION
     Route: 065
  6. FOLIC ACID. [Concomitant]
     Active Substance: FOLIC ACID
     Indication: PRODUCT USED FOR UNKNOWN INDICATION
     Route: 065
  7. VIT B 12 [Concomitant]
     Active Substance: CYANOCOBALAMIN
     Indication: PRODUCT USED FOR UNKNOWN INDICATION
     Route: 065
  8. ABATACEPT [Suspect]
     Active Substance: ABATACEPT
     Indication: RHEUMATOID ARTHRITIS
     Dosage: 750 MG, Q4WK
     Route: 042
     Dates: start: 20160614
  9. ARALEN [Concomitant]
     Active Substance: CHLOROQUINE PHOSPHATE
     Indication: PRODUCT USED FOR UNKNOWN INDICATION
     Route: 065
  10. CALCIUM [Concomitant]
     Active Substance: CALCIUM
     Indication: PRODUCT USED FOR UNKNOWN INDICATION
     Route: 065
  11. METHOTREXATE. [Concomitant]
     Active Substance: METHOTREXATE
     Indication: PRODUCT USED FOR UNKNOWN INDICATION
     Route: 065
  12. VIT D [Concomitant]
     Active Substance: VITAMIN D NOS
     Indication: PRODUCT USED FOR UNKNOWN INDICATION
     Route: 065
  13. APO MOMETASONE [Concomitant]
     Active Substance: MOMETASONE
     Indication: PRODUCT USED FOR UNKNOWN INDICATION
     Route: 065

REACTIONS (26)
  - Herpes virus infection [Unknown]
  - Headache [Recovering/Resolving]
  - Blood pressure increased [Unknown]
  - Tachyarrhythmia [Unknown]
  - Infusion related reaction [Unknown]
  - Oedema [Unknown]
  - Sinusitis [Recovered/Resolved]
  - Skin disorder [Unknown]
  - Cardiac failure [Recovering/Resolving]
  - Chest pain [Unknown]
  - Fall [Unknown]
  - Bronchitis [Recovered/Resolved]
  - Chest pain [Recovered/Resolved]
  - Fatigue [Recovering/Resolving]
  - Hypotension [Unknown]
  - Heart valve incompetence [Unknown]
  - Arthropathy [Unknown]
  - Arthralgia [Unknown]
  - Acute pulmonary oedema [Unknown]
  - Paraesthesia [Unknown]
  - Diarrhoea [Unknown]
  - Dyspnoea [Unknown]
  - Urinary tract infection [Recovered/Resolved]
  - Herpes zoster [Recovering/Resolving]
  - Wound [Recovering/Resolving]
  - Traumatic haematoma [Unknown]

NARRATIVE: CASE EVENT DATE: 2016
